FAERS Safety Report 11074328 (Version 1)
Quarter: 2015Q2

REPORT INFORMATION
  Report Type: Report from Study
  Country: US (occurrence: US)
  Receive Date: 20150428
  Receipt Date: 20150428
  Transmission Date: 20150821
  Serious: Yes (Hospitalization)
  Sender: FDA-Public Use
  Company Number: US-ACTELION-A-NJ2013-80417

PATIENT
  Age: 75 Year
  Sex: Female

DRUGS (5)
  1. REMODULIN [Concomitant]
     Active Substance: TREPROSTINIL
     Route: 058
  2. SILDENAFIL. [Concomitant]
     Active Substance: SILDENAFIL
  3. COUMADIN [Concomitant]
     Active Substance: WARFARIN SODIUM
  4. RIOCIGUAT [Concomitant]
     Active Substance: RIOCIGUAT
  5. TRACLEER [Suspect]
     Active Substance: BOSENTAN\BOSENTAN MONOHYDRATE
     Indication: PULMONARY ARTERIAL HYPERTENSION
     Dosage: UNK
     Route: 048

REACTIONS (4)
  - Hypotension [Unknown]
  - Pneumonia [Unknown]
  - Drug dose omission [Unknown]
  - Atrial fibrillation [Unknown]
